FAERS Safety Report 7341368-6 (Version None)
Quarter: 2011Q1

REPORT INFORMATION
  Report Type: 
  Country: None (occurrence: None)
  Receive Date: 20110301
  Receipt Date: 20110215
  Transmission Date: 20110831
  Serious: Yes (Death, Life-Threatening, Hospitalization, Other)
  Sender: FDA-Public Use
  Company Number: 010975

PATIENT
  Age: 25 Year
  Sex: Male

DRUGS (38)
  1. DIPHENHYDRAMINE (DIPHENHYDRAMINE) [Concomitant]
  2. FAMOTIDINE [Concomitant]
  3. SODIUM PHOSPHATE (32P) (SODIUM PHOSPHATE (32 P)) [Concomitant]
  4. VANCOMYCIN [Concomitant]
  5. ACETAMINOPHEN [Concomitant]
  6. ACYCLOVIR [Concomitant]
  7. PROMETHAZINE [Concomitant]
  8. ETOPOSIDE [Concomitant]
  9. AMITRIPTYLINE HYDROCHLORIDE [Concomitant]
  10. POTASSIUM CHLORIDE [Concomitant]
  11. BENADRYL/MAALOX LIDOCAINE [Concomitant]
  12. ONDANSETRON [Concomitant]
  13. OXYCODONE (OXYCODONE) [Concomitant]
  14. FLEET MINERAL OIL EDEMA (PARAFFIN, LIQUID) [Concomitant]
  15. CAMPHOR (CAMPHOR) [Concomitant]
  16. CEFEPIME [Concomitant]
  17. OPC-27300 (BUSULFAN) INJECTION [Suspect]
     Indication: STEM CELL TRANSPLANT
     Dosage: 0.8 MG/KG, DAILY DOSE, INTRAVENOUS ; 270 MG, DAILY DOSE, INTRAVENOUS
     Route: 042
     Dates: start: 20100809, end: 20100812
  18. OPC-27300 (BUSULFAN) INJECTION [Suspect]
     Indication: STEM CELL TRANSPLANT
     Dosage: 0.8 MG/KG, DAILY DOSE, INTRAVENOUS ; 270 MG, DAILY DOSE, INTRAVENOUS
     Route: 042
     Dates: start: 20100804, end: 20100804
  19. NEXIUM [Concomitant]
  20. NICORETTE [Concomitant]
  21. GI COCKTAIL [Concomitant]
  22. FLUCONAZOLE [Concomitant]
  23. SIMETHICINE (SIMETHICONE) [Concomitant]
  24. ATIVAN [Concomitant]
  25. DOCUSATE (DOCUSATE) [Concomitant]
  26. AMBIEN [Concomitant]
  27. HYDROXYZINE [Concomitant]
  28. MORPHINE [Concomitant]
  29. DEXAMETHASONE (DEXAMETHASONE) [Concomitant]
  30. MESNA [Concomitant]
  31. MAGNESIUM SULFATE [Concomitant]
  32. FENTANYL [Concomitant]
  33. METOCLOPRAMIDE [Concomitant]
  34. CYCLOPHOSPHAMIDE [Concomitant]
  35. CIPROFLOXACIN [Concomitant]
  36. MAGNESIUM CITRATE (MAGNESIUM CITRATE) [Concomitant]
  37. LOPERAMIDE [Concomitant]
  38. HYDROCORTONE [Concomitant]

REACTIONS (26)
  - ABDOMINAL COMPARTMENT SYNDROME [None]
  - ATRIAL FLUTTER [None]
  - GASTRIC ULCER [None]
  - HAEMOPHILUS TEST POSITIVE [None]
  - RESPIRATORY FAILURE [None]
  - HYPOTENSION [None]
  - GENERAL PHYSICAL HEALTH DETERIORATION [None]
  - MENTAL STATUS CHANGES [None]
  - HYPOXIA [None]
  - HEPATIC FAILURE [None]
  - TACHYPNOEA [None]
  - LACTIC ACIDOSIS [None]
  - HEPATIC CONGESTION [None]
  - ACUTE RESPIRATORY DISTRESS SYNDROME [None]
  - SPUTUM INCREASED [None]
  - NEUTROPHIL COUNT DECREASED [None]
  - WHITE BLOOD CELL COUNT DECREASED [None]
  - SUPRAVENTRICULAR TACHYCARDIA [None]
  - KLEBSIELLA BACTERAEMIA [None]
  - SEPTIC SHOCK [None]
  - RENAL FAILURE [None]
  - PYREXIA [None]
  - GASTROINTESTINAL HAEMORRHAGE [None]
  - CLOSTRIDIUM DIFFICILE COLITIS [None]
  - INFECTION [None]
  - HAEMODYNAMIC INSTABILITY [None]
